FAERS Safety Report 9415728 (Version 1)
Quarter: 2013Q3

REPORT INFORMATION
  Report Type: Spontaneous
  Country: US (occurrence: US)
  Receive Date: 20130723
  Receipt Date: 20130723
  Transmission Date: 20140515
  Serious: No
  Sender: FDA-Public Use
  Company Number: US-009507513-1307USA009849

PATIENT
  Age: 59 Year
  Sex: Female

DRUGS (1)
  1. EMEND [Suspect]
     Indication: PROPHYLAXIS OF NAUSEA AND VOMITING
     Dosage: 125 MG, ONE CAPSULE AND TWO 80MG CAPSULES
     Route: 048
     Dates: start: 20130716, end: 20130716

REACTIONS (2)
  - Overdose [Unknown]
  - No adverse event [Unknown]
